FAERS Safety Report 5202599-4 (Version None)
Quarter: 2006Q4

REPORT INFORMATION
  Report Type: 
  Country: None (occurrence: None)
  Receive Date: 20061016
  Receipt Date: 20060821
  Transmission Date: 20070319
  Serious: No
  Sender: FDA-Public Use
  Company Number: 2006SP003087

PATIENT
  Age: 53 Year
  Sex: Female
  Weight: 74.8435 kg

DRUGS (3)
  1. LUNESTA [Suspect]
     Indication: INSOMNIA
     Dosage: 3 MG; PRN; ORAL
     Route: 048
     Dates: start: 20051118, end: 20060820
  2. SIMVASTATIN [Concomitant]
  3. TAMOXIFEN CITRATE [Concomitant]

REACTIONS (1)
  - DYSGEUSIA [None]
